FAERS Safety Report 22388734 (Version 1)
Quarter: 2023Q2

REPORT INFORMATION
  Report Type: Spontaneous
  Country: CL (occurrence: CL)
  Receive Date: 20230531
  Receipt Date: 20230531
  Transmission Date: 20230721
  Serious: Yes (Hospitalization)
  Sender: FDA-Public Use
  Company Number: CL-002147023-NVSC2023CL085552

PATIENT
  Sex: Male

DRUGS (2)
  1. GLIVEC [Suspect]
     Active Substance: IMATINIB MESYLATE
     Indication: Philadelphia positive acute lymphocytic leukaemia
     Dosage: 400 MG (1X400 MG)
     Route: 065
  2. GLIVEC [Suspect]
     Active Substance: IMATINIB MESYLATE
     Dosage: 600 MG, QD
     Route: 048
     Dates: start: 201810, end: 20230406

REACTIONS (3)
  - Acute lymphocytic leukaemia recurrent [Unknown]
  - CSF test abnormal [Recovered/Resolved]
  - Cytogenetic analysis abnormal [Recovered/Resolved]

NARRATIVE: CASE EVENT DATE: 20230406
